FAERS Safety Report 4822368-4 (Version None)
Quarter: 2005Q4

REPORT INFORMATION
  Report Type: 
  Country: None (occurrence: None)
  Receive Date: 20051108
  Receipt Date: 20050912
  Transmission Date: 20060501
  Serious: Yes (Hospitalization)
  Sender: FDA-Public Use
  Company Number: DE-BOEHRINGER INGELHEIM PHARMACEUTICALS, INC.-2005-BP-15964BP

PATIENT
  Age: 37 Year
  Sex: Male
  Weight: 85 kg

DRUGS (4)
  1. VIRAMUNE [Suspect]
     Indication: HIV INFECTION
     Route: 048
     Dates: start: 20050823, end: 20050902
  2. COMBIVIR [Concomitant]
     Indication: HIV INFECTION
     Dosage: 1 QD
     Route: 048
     Dates: start: 20050405, end: 20050902
  3. NOVAMINSULFON-RATIOPHARM [Concomitant]
     Indication: HEADACHE
     Dates: start: 20050823
  4. AMITRIPTYLINE HCL [Concomitant]
     Indication: HEADACHE
     Dates: start: 20050823

REACTIONS (3)
  - C-REACTIVE PROTEIN INCREASED [None]
  - HEADACHE [None]
  - PYREXIA [None]
